FAERS Safety Report 9514177 (Version 1)
Quarter: 2013Q3

REPORT INFORMATION
  Report Type: Spontaneous
  Country: US (occurrence: US)
  Receive Date: 20130910
  Receipt Date: 20130910
  Transmission Date: 20140515
  Serious: No
  Sender: FDA-Public Use
  Company Number: -SAAVPROD-BMS17252867

PATIENT
  Age: 79 Year
  Sex: Female
  Weight: 66.66 kg

DRUGS (4)
  1. IRBESARTAN [Suspect]
  2. LIPITOR [Concomitant]
  3. ATENOLOL [Concomitant]
  4. ASPIRIN [Concomitant]

REACTIONS (3)
  - Vomiting [Unknown]
  - Headache [Unknown]
  - Dizziness [Unknown]
